FAERS Safety Report 5273281-2 (Version None)
Quarter: 2007Q1

REPORT INFORMATION
  Report Type: 
  Country: None (occurrence: None)
  Receive Date: 20070319
  Receipt Date: 20070306
  Transmission Date: 20070707
  Serious: Yes (Death)
  Sender: FDA-Public Use
  Company Number: 2007-00445

PATIENT
  Sex: Female

DRUGS (2)
  1. VELCADE [Suspect]
     Indication: MULTIPLE MYELOMA
     Dosage: 2.00 MG, UNK, UNKNOWN
     Dates: start: 20070109
  2. DEXAMETHASONE [Concomitant]

REACTIONS (1)
  - MENINGITIS LISTERIA [None]
